FAERS Safety Report 10148804 (Version 1)
Quarter: 2014Q2

REPORT INFORMATION
  Report Type: Report from Study
  Country: GB (occurrence: GB)
  Receive Date: 20140502
  Receipt Date: 20140502
  Transmission Date: 20141212
  Serious: Yes (Death)
  Sender: FDA-Public Use
  Company Number: GB-AMGEN INC.-GBRCT2014031681

PATIENT
  Age: 68 Year
  Sex: Female
  Weight: 95 kg

DRUGS (15)
  1. ETANERCEPT [Suspect]
     Indication: PRODUCT USED FOR UNKNOWN INDICATION
     Dosage: 50 MG, QWK
     Route: 065
     Dates: start: 20120326, end: 20130129
  2. NITRAZEPAM [Concomitant]
     Dosage: UNK
     Dates: start: 20070910
  3. WARFARIN [Concomitant]
     Dosage: UNK
     Dates: start: 20070813
  4. PANTOPRAZOLE [Concomitant]
     Dosage: UNK
     Dates: start: 20070910
  5. MONOMAX [Concomitant]
     Dosage: UNK
     Dates: start: 20100110
  6. RAMIPRIL [Concomitant]
     Dosage: UNK
     Dates: start: 20070910
  7. CHLORMETHIAZOLE [Concomitant]
     Dosage: UNK
     Dates: start: 20070910
  8. ATORVASTATIN [Concomitant]
     Dosage: UNK
     Dates: start: 20070910
  9. CO-CODAMOL [Concomitant]
     Dosage: UNK
     Dates: start: 20070813
  10. GABAPENTIN [Concomitant]
     Dosage: UNK
     Dates: start: 20070813
  11. NOVOMIX [Concomitant]
     Dosage: UNK
     Dates: start: 20000101
  12. METFORMIN [Concomitant]
     Dosage: UNK
     Dates: start: 20000101
  13. PREGABALIN [Concomitant]
     Dosage: UNK
     Dates: start: 20130201
  14. SERTRALINE [Concomitant]
     Dosage: UNK
     Dates: start: 20130201
  15. TRAMADOL [Concomitant]
     Dosage: UNK
     Dates: start: 20130201

REACTIONS (4)
  - Nephrolithiasis [Fatal]
  - Myocardial ischaemia [Fatal]
  - Cardiac failure [Fatal]
  - Urinary tract infection [Fatal]
